FAERS Safety Report 7651460-4 (Version None)
Quarter: 2011Q3

REPORT INFORMATION
  Report Type: 
  Country: None (occurrence: None)
  Receive Date: 20110802
  Receipt Date: 20110728
  Transmission Date: 20111222
  Serious: Yes (Life-Threatening, Other)
  Sender: FDA-Public Use
  Company Number: PHHY2011DE51329

PATIENT
  Sex: Female
  Weight: 82 kg

DRUGS (14)
  1. DOXORUBICIN HYDROCHLORIDE [Concomitant]
     Indication: BREAST CANCER
     Dosage: 40 MG, UNK
     Route: 042
     Dates: start: 20110627
  2. FENISTIL [Concomitant]
     Indication: SKIN IRRITATION
     Dosage: 4 MG, UNK
     Route: 042
     Dates: start: 20100715
  3. AVASTIN [Concomitant]
     Dosage: 820 MG, UNK
     Dates: start: 20100715
  4. DEXAMETHASONE [Concomitant]
     Indication: INFLAMMATION
     Dosage: 8 MG, UNK
     Route: 042
     Dates: start: 20100715
  5. PREDNISOLONE [Concomitant]
     Indication: INFLAMMATION
     Dosage: 20 MG, UNK
     Route: 048
     Dates: start: 20110601
  6. GRANISETRON [Concomitant]
     Indication: VOMITING
     Dosage: 3 MG, UNK
     Route: 042
     Dates: start: 20100715
  7. DEXAMETHASONE [Concomitant]
     Dosage: 4 MG,DAY
     Dates: start: 20100701, end: 20100718
  8. TORSEMIDE [Concomitant]
     Indication: LYMPHOEDEMA
     Dosage: 5 MG, UNK
     Route: 048
     Dates: start: 20110601
  9. RANITIDINE [Concomitant]
     Dosage: 50 MG, UNK
     Route: 042
     Dates: start: 20100715
  10. PANTOPRAZOLE SODIUM [Concomitant]
     Dosage: 20 MG, DAILY
     Dates: start: 20100701
  11. LEVOTHYROXINE SODIUM [Concomitant]
     Dosage: 100 UG, / DAY
     Dates: start: 20100701
  12. BISOPROLOL FUMARATE [Concomitant]
     Indication: TACHYCARDIA
     Dosage: 5 MG, UNK
     Route: 048
     Dates: start: 20110601
  13. ZOMETA [Suspect]
     Indication: BONE DISORDER
     Dosage: 4 MG/5ML  EVERY 4 WEEKS
     Route: 042
     Dates: start: 20100714
  14. PACLITAXEL [Concomitant]
     Dosage: 175 MG, UNK
     Dates: start: 20100715

REACTIONS (5)
  - NEOPLASM MALIGNANT [None]
  - METASTASES TO LUNG [None]
  - FOOT FRACTURE [None]
  - NEOPLASM PROGRESSION [None]
  - GENERAL PHYSICAL HEALTH DETERIORATION [None]
